FAERS Safety Report 25252632 (Version 4)
Quarter: 2025Q4

REPORT INFORMATION
  Report Type: Other
  Country: US (occurrence: US)
  Receive Date: 20250429
  Receipt Date: 20251026
  Transmission Date: 20260119
  Serious: No
  Sender: TRAVERE THERAPEUTICS
  Company Number: US-TRAVERE-2025TVT00444

PATIENT
  Age: 33 Year
  Sex: Female

DRUGS (2)
  1. FILSPARI [Suspect]
     Active Substance: SPARSENTAN
     Indication: IgA nephropathy
     Route: 048
     Dates: start: 20250331
  2. FILSPARI [Suspect]
     Active Substance: SPARSENTAN
     Dosage: LOT NUMBER: 1979025, EXPIRY DATE: 31-AUG-2026
     Route: 048
     Dates: start: 20250410

REACTIONS (7)
  - Hypotension [None]
  - Dizziness postural [None]
  - Headache [None]
  - Peripheral swelling [None]
  - Joint swelling [None]
  - Anaemia [None]
  - Product administration error [Unknown]

NARRATIVE: CASE EVENT DATE: 20250401
